FAERS Safety Report 8211208-1 (Version None)
Quarter: 2012Q1

REPORT INFORMATION
  Report Type: 
  Country: None (occurrence: None)
  Receive Date: 20120315
  Receipt Date: 20120308
  Transmission Date: 20120608
  Serious: No
  Sender: FDA-Public Use
  Company Number: US-BAYER-2012-024371

PATIENT
  Age: 32 Year
  Sex: Female

DRUGS (1)
  1. MIRENA [Suspect]
     Indication: CONTRACEPTION
     Dosage: 20 MCG/24HR, UNK
     Route: 015
     Dates: start: 20100909, end: 20120308

REACTIONS (4)
  - DYSPEPSIA [None]
  - PREGNANCY WITH CONTRACEPTIVE DEVICE [None]
  - NAUSEA [None]
  - FATIGUE [None]
